FAERS Safety Report 12012167 (Version 5)
Quarter: 2020Q3

REPORT INFORMATION
  Report Type: Report from Study
  Country: AU (occurrence: AU)
  Receive Date: 20160205
  Receipt Date: 20160629
  Transmission Date: 20201104
  Serious: Yes (Hospitalization)
  Sender: FDA-Public Use
  Company Number: AU-JNJFOC-20141203508

PATIENT
  Age: 53 Year
  Sex: Male
  Weight: 101.8 kg

DRUGS (49)
  1. VELCADE [Suspect]
     Active Substance: BORTEZOMIB
     Indication: PLASMA CELL MYELOMA
     Route: 058
     Dates: start: 20150106
  2. VALTREX [Concomitant]
     Active Substance: VALACYCLOVIR HYDROCHLORIDE
     Indication: VARICELLA ZOSTER VIRUS INFECTION
  3. VALTREX [Concomitant]
     Active Substance: VALACYCLOVIR HYDROCHLORIDE
     Indication: PROPHYLAXIS
  4. LAMIVUDINE. [Concomitant]
     Active Substance: LAMIVUDINE
     Indication: EXPOSURE TO COMMUNICABLE DISEASE
  5. MICROLAX [Concomitant]
     Indication: CONSTIPATION
  6. DARATUMUMAB [Suspect]
     Active Substance: DARATUMUMAB
     Indication: PLASMA CELL MYELOMA
     Route: 042
     Dates: start: 20141230, end: 20141230
  7. DEXAMETHASONE. [Suspect]
     Active Substance: DEXAMETHASONE
     Indication: PLASMA CELL MYELOMA
     Route: 048
     Dates: start: 20150107
  8. BACTRIM DS [Concomitant]
     Active Substance: SULFAMETHOXAZOLE\TRIMETHOPRIM
     Indication: PROPHYLAXIS
  9. ALLOPURINOL. [Concomitant]
     Active Substance: ALLOPURINOL
     Indication: PROPHYLAXIS
  10. NORMAL SALINE [Concomitant]
     Active Substance: SODIUM CHLORIDE
     Indication: FLUID RETENTION
  11. RASBURICASE [Concomitant]
     Active Substance: RASBURICASE
     Indication: HYPERURICAEMIA
     Dosage: TREATMENT FOR TUMOR LYSIS SYNDROME
     Dates: start: 20150102
  12. RASBURICASE [Concomitant]
     Active Substance: RASBURICASE
     Indication: PROPHYLAXIS
     Dosage: TREATMENT FOR TUMOR LYSIS SYNDROME
     Dates: start: 20150102
  13. WARFARIN [Concomitant]
     Active Substance: WARFARIN
     Indication: HEART VALVE REPLACEMENT
  14. PANTOPRAZOLE [Concomitant]
     Active Substance: PANTOPRAZOLE
     Indication: GASTROOESOPHAGEAL REFLUX PROPHYLAXIS
  15. FILGRASTIM [Concomitant]
     Active Substance: FILGRASTIM
     Indication: NEUTROPHIL COUNT DECREASED
  16. PARACETAMOL [Concomitant]
     Active Substance: ACETAMINOPHEN
     Indication: FLANK PAIN
  17. CLARITHROMYCIN. [Concomitant]
     Active Substance: CLARITHROMYCIN
     Indication: PERTUSSIS
  18. KEFLEX [Concomitant]
     Active Substance: CEPHALEXIN
     Indication: PROPHYLAXIS
     Dosage: ^PRE?PROCEDURE^
  19. CHLORSIG [Concomitant]
     Active Substance: CHLORAMPHENICOL
     Indication: EPISTAXIS
  20. VITAMIN K NOS [Concomitant]
     Indication: PROPHYLAXIS
  21. RASBURICASE [Concomitant]
     Active Substance: RASBURICASE
     Indication: HYPERURICAEMIA
     Dosage: FOR TREATMENT OF HYPERURICEMIA
     Dates: start: 20141227
  22. VELCADE [Suspect]
     Active Substance: BORTEZOMIB
     Indication: PLASMA CELL MYELOMA
     Dosage: AS PER PROTOCOL
     Route: 058
     Dates: start: 20141201, end: 20141211
  23. VELCADE [Suspect]
     Active Substance: BORTEZOMIB
     Indication: PLASMA CELL MYELOMA
     Dosage: DAY 11
     Route: 058
     Dates: end: 201501
  24. VALTREX [Concomitant]
     Active Substance: VALACYCLOVIR HYDROCHLORIDE
     Indication: VARICELLA ZOSTER VIRUS INFECTION
  25. VALTREX [Concomitant]
     Active Substance: VALACYCLOVIR HYDROCHLORIDE
     Indication: PROPHYLAXIS
  26. LAMIVUDINE. [Concomitant]
     Active Substance: LAMIVUDINE
     Indication: EXPOSURE TO COMMUNICABLE DISEASE
  27. ENDONE [Concomitant]
     Active Substance: OXYCODONE HYDROCHLORIDE
     Indication: FLANK PAIN
  28. RASBURICASE [Concomitant]
     Active Substance: RASBURICASE
     Indication: PROPHYLAXIS
     Dosage: FOR TREATMENT OF HYPERURICEMIA
     Dates: start: 20141227
  29. RASBURICASE [Concomitant]
     Active Substance: RASBURICASE
     Indication: HYPERCALCAEMIA
     Dosage: TREATMENT FOR TUMOR LYSIS SYNDROME
     Dates: start: 20150102
  30. RASBURICASE [Concomitant]
     Active Substance: RASBURICASE
     Indication: HYPERCALCAEMIA
     Dosage: FOR TREATMENT OF HYPERURICEMIA
     Dates: start: 20141227
  31. DARATUMUMAB [Suspect]
     Active Substance: DARATUMUMAB
     Indication: PLASMA CELL MYELOMA
     Route: 042
     Dates: start: 20141201, end: 20141208
  32. DEXAMETHASONE. [Suspect]
     Active Substance: DEXAMETHASONE
     Indication: PLASMA CELL MYELOMA
     Route: 048
     Dates: start: 20141201, end: 20150102
  33. MOVICOL [Concomitant]
     Active Substance: POLYETHYLENE GLYCOL 3350\POTASSIUM CHLORIDE\SODIUM BICARBONATE\SODIUM CHLORIDE
     Indication: CONSTIPATION
  34. COLOXYL WITH SENNA [Concomitant]
     Active Substance: DOCUSATE SODIUM\SENNOSIDES A AND B
     Indication: CONSTIPATION
  35. CEFTRIAXONE. [Concomitant]
     Active Substance: CEFTRIAXONE
     Indication: PYREXIA
  36. RASBURICASE [Concomitant]
     Active Substance: RASBURICASE
     Indication: TUMOUR LYSIS SYNDROME
     Dosage: FOR TREATMENT OF HYPERURICEMIA
     Dates: start: 20141227
  37. VELCADE [Suspect]
     Active Substance: BORTEZOMIB
     Indication: PLASMA CELL MYELOMA
     Route: 058
     Dates: end: 20150102
  38. ALLOPURINOL. [Concomitant]
     Active Substance: ALLOPURINOL
     Indication: PROPHYLAXIS
  39. ENDONE [Concomitant]
     Active Substance: OXYCODONE HYDROCHLORIDE
     Indication: ABDOMINAL PAIN
  40. AMOXIL DUO [Concomitant]
     Indication: CHRONIC KIDNEY DISEASE
  41. DARATUMUMAB [Suspect]
     Active Substance: DARATUMUMAB
     Indication: PLASMA CELL MYELOMA
     Dosage: DAY 8
     Route: 042
     Dates: start: 201501
  42. WARFARIN [Concomitant]
     Active Substance: WARFARIN
     Indication: AORTIC VALVE REPLACEMENT
  43. CLARITHROMYCIN. [Concomitant]
     Active Substance: CLARITHROMYCIN
     Indication: UPPER RESPIRATORY TRACT INFECTION
  44. NORMAL SALINE [Concomitant]
     Active Substance: SODIUM CHLORIDE
     Indication: FLUID RETENTION
  45. NORMAL SALINE [Concomitant]
     Active Substance: SODIUM CHLORIDE
     Indication: FLUID RETENTION
  46. DRIXINE [Concomitant]
     Indication: EPISTAXIS
  47. PHOSPHATE?SANDOZ [Concomitant]
     Active Substance: SODIUM PHOSPHATE, MONOBASIC, ANHYDROUS
     Indication: HYPERPHOSPHATAEMIA
  48. PHOSPHATE?SANDOZ [Concomitant]
     Active Substance: SODIUM PHOSPHATE, MONOBASIC, ANHYDROUS
     Indication: PROPHYLAXIS
  49. RASBURICASE [Concomitant]
     Active Substance: RASBURICASE
     Indication: TUMOUR LYSIS SYNDROME
     Dosage: TREATMENT FOR TUMOR LYSIS SYNDROME
     Dates: start: 20150102

REACTIONS (5)
  - Tumour lysis syndrome [Recovered/Resolved]
  - Flank pain [Recovered/Resolved]
  - Plasmacytoma [Unknown]
  - Platelet count decreased [Recovered/Resolved]
  - Plasmacytoma [Unknown]

NARRATIVE: CASE EVENT DATE: 20141202
